FAERS Safety Report 25012333 (Version 1)
Quarter: 2025Q1

REPORT INFORMATION
  Report Type: Spontaneous
  Country: IN (occurrence: IN)
  Receive Date: 20250226
  Receipt Date: 20250226
  Transmission Date: 20250409
  Serious: Yes (Hospitalization)
  Sender: MACLEODS
  Company Number: IN-MLMSERVICE-20250207-PI399592-00228-1

PATIENT

DRUGS (2)
  1. MONTELUKAST [Suspect]
     Active Substance: MONTELUKAST
     Indication: Otorrhoea
     Route: 065
  2. MONTELUKAST [Suspect]
     Active Substance: MONTELUKAST
     Indication: Dizziness

REACTIONS (1)
  - Psychotic disorder [Recovered/Resolved]
